FAERS Safety Report 4791240-0 (Version None)
Quarter: 2005Q4

REPORT INFORMATION
  Report Type: 
  Country: None (occurrence: None)
  Receive Date: 20051005
  Receipt Date: 20050923
  Transmission Date: 20060501
  Serious: Yes (Other)
  Sender: FDA-Public Use
  Company Number: 12455

PATIENT
  Age: 39 Year
  Sex: Female

DRUGS (4)
  1. VINCRISTINE [Suspect]
  2. CYCLOPHOSPHAMIDE [Concomitant]
  3. PREDNISOLONE [Concomitant]
  4. METHOTREXATE [Concomitant]

REACTIONS (1)
  - PRURITUS [None]
